FAERS Safety Report 8560609-0 (Version None)
Quarter: 2012Q3

REPORT INFORMATION
  Report Type: 
  Country: None (occurrence: None)
  Receive Date: 20120723
  Receipt Date: 20120720
  Transmission Date: 20120928
  Serious: Yes (Hospitalization)
  Sender: FDA-Public Use
  Company Number: SP05864

PATIENT
  Sex: Female

DRUGS (2)
  1. MOVIPREP [Suspect]
     Indication: BOWEL PREPARATION
     Dosage: (2 LIT), ORAL
     Route: 048
  2. PROPOFOL [Concomitant]

REACTIONS (2)
  - PNEUMONIA ASPIRATION [None]
  - CHILLS [None]
